FAERS Safety Report 19595667 (Version 2)
Quarter: 2021Q3

REPORT INFORMATION
  Report Type: Report from Study
  Country: FR (occurrence: FR)
  Receive Date: 20210722
  Receipt Date: 20210825
  Transmission Date: 20211014
  Serious: Yes (Hospitalization, Other)
  Sender: FDA-Public Use
  Company Number: FR-TAKEDA-2021TUS043685

PATIENT
  Age: 13 Year
  Sex: Male

DRUGS (16)
  1. TEDUGLUTIDE [Suspect]
     Active Substance: TEDUGLUTIDE
     Indication: SHORT-BOWEL SYNDROME
     Dosage: 1.600 MILLIGRAM (0.0500 MG/KG), QD
     Route: 065
     Dates: start: 20200813, end: 20200826
  2. TEDUGLUTIDE [Suspect]
     Active Substance: TEDUGLUTIDE
     Dosage: 1.700 MILLIGRAM(0.0500 MG/KG), QD
     Route: 065
     Dates: start: 20200827, end: 202010
  3. TEDUGLUTIDE [Suspect]
     Active Substance: TEDUGLUTIDE
     Indication: SHORT-BOWEL SYNDROME
     Dosage: 1.600 MILLIGRAM (0.0500 MG/KG), QD
     Route: 065
     Dates: start: 20200813, end: 20200826
  4. TEDUGLUTIDE [Suspect]
     Active Substance: TEDUGLUTIDE
     Dosage: 1.700 MILLIGRAM(0.0500 MG/KG), QD
     Route: 065
     Dates: start: 20200827, end: 202010
  5. TEDUGLUTIDE [Suspect]
     Active Substance: TEDUGLUTIDE
     Dosage: 1.800 MILLIGRAM(0.0500 MG/KG), QD
     Route: 065
     Dates: start: 202010
  6. TEDUGLUTIDE [Suspect]
     Active Substance: TEDUGLUTIDE
     Indication: SHORT-BOWEL SYNDROME
     Dosage: 1.600 MILLIGRAM (0.0500 MG/KG), QD
     Route: 065
     Dates: start: 20200813, end: 20200826
  7. TEDUGLUTIDE [Suspect]
     Active Substance: TEDUGLUTIDE
     Dosage: 1.700 MILLIGRAM(0.0500 MG/KG), QD
     Route: 065
     Dates: start: 20200827, end: 202010
  8. TEDUGLUTIDE [Suspect]
     Active Substance: TEDUGLUTIDE
     Dosage: 1.800 MILLIGRAM(0.0500 MG/KG), QD
     Route: 065
     Dates: start: 202010
  9. TEDUGLUTIDE [Suspect]
     Active Substance: TEDUGLUTIDE
     Indication: SHORT-BOWEL SYNDROME
     Dosage: 1.600 MILLIGRAM (0.0500 MG/KG), QD
     Route: 065
     Dates: start: 20200813, end: 20200826
  10. TEDUGLUTIDE [Suspect]
     Active Substance: TEDUGLUTIDE
     Dosage: 1.700 MILLIGRAM(0.0500 MG/KG), QD
     Route: 065
     Dates: start: 20200827, end: 202010
  11. TRIGLYCERIDES OIL [Concomitant]
     Indication: PROPHYLAXIS
     Dosage: 999 UNK
     Route: 048
  12. QUESTRAN [Concomitant]
     Active Substance: CHOLESTYRAMINE
     Indication: PROPHYLAXIS
     Dosage: 0.50 UNITS, QD
     Route: 048
     Dates: start: 2019
  13. TEDUGLUTIDE [Suspect]
     Active Substance: TEDUGLUTIDE
     Dosage: 1.800 MILLIGRAM(0.0500 MG/KG), QD
     Route: 065
     Dates: start: 202010
  14. TAUROLOCK [Concomitant]
     Active Substance: TAUROLIDINE
     Indication: DEVICE RELATED INFECTION
     Dosage: 1 UNKNOWN
     Route: 065
     Dates: start: 202008, end: 202008
  15. IMODIUM [Concomitant]
     Active Substance: LOPERAMIDE HYDROCHLORIDE
     Indication: PROPHYLAXIS
     Dosage: UNK UNK, BID
     Route: 048
     Dates: start: 2020
  16. TEDUGLUTIDE [Suspect]
     Active Substance: TEDUGLUTIDE
     Dosage: 1.800 MILLIGRAM(0.0500 MG/KG), QD
     Route: 065
     Dates: start: 202010

REACTIONS (2)
  - Vascular device infection [Recovered/Resolved]
  - Staphylococcal infection [Recovered/Resolved]
